FAERS Safety Report 17365314 (Version 11)
Quarter: 2022Q2

REPORT INFORMATION
  Report Type: Report from Study
  Country: FR (occurrence: FR)
  Receive Date: 20200204
  Receipt Date: 20220401
  Transmission Date: 20220721
  Serious: Yes (Hospitalization, Other)
  Sender: FDA-Public Use
  Company Number: FR-BRISTOL-MYERS SQUIBB COMPANY-BMS-2020-007647

PATIENT
  Age: 52 Year
  Sex: Female
  Weight: 77.8 kg

DRUGS (5)
  1. NIVOLUMAB [Suspect]
     Active Substance: NIVOLUMAB
     Indication: Metastatic malignant melanoma
     Dosage: 237 MILLIGRAM, (FIRST 4 INJECTIONS: 3 MG/KG, Q3WK AND AFTER 480 MILLIGRAM, Q4WK)
     Route: 042
     Dates: start: 20190828, end: 20191129
  2. IPILIMUMAB [Suspect]
     Active Substance: IPILIMUMAB
     Indication: Metastatic malignant melanoma
     Dosage: 79 MILLIGRAM, Q3WK
     Route: 042
     Dates: start: 20190828, end: 20191129
  3. NIVOLUMAB [Suspect]
     Active Substance: NIVOLUMAB
     Indication: Metastatic malignant melanoma
     Dosage: 237 MILLIGRAM, (FIRST 4 INJECTIONS: 3 MG/KG, Q3WK AND AFTER 480 MILLIGRAM, Q4WK)
     Route: 042
     Dates: start: 20190828, end: 20191129
  4. ACETAMINOPHEN [Concomitant]
     Active Substance: ACETAMINOPHEN
     Indication: Abdominal pain
     Dosage: 1 GRAM, TID
     Route: 048
     Dates: start: 20190905
  5. TRAMADOL HYDROCHLORIDE [Concomitant]
     Active Substance: TRAMADOL HYDROCHLORIDE
     Indication: Abdominal pain
     Dosage: 100 MILLIGRAM, BID
     Route: 048
     Dates: start: 20190917, end: 20200221

REACTIONS (3)
  - Retinal vasculitis [Not Recovered/Not Resolved]
  - Uveitis [Not Recovered/Not Resolved]
  - Hypoacusis [Not Recovered/Not Resolved]

NARRATIVE: CASE EVENT DATE: 20191113
